FAERS Safety Report 13222566 (Version 1)
Quarter: 2017Q1

REPORT INFORMATION
  Report Type: Other
  Country: US (occurrence: US)
  Receive Date: 20170212
  Receipt Date: 20170212
  Transmission Date: 20170428
  Serious: No
  Sender: FDA-Public Use
  Company Number: US-ACORDA-ACO_121465_2016

PATIENT

DRUGS (1)
  1. AMPYRA [Suspect]
     Active Substance: DALFAMPRIDINE
     Indication: PRODUCT USED FOR UNKNOWN INDICATION
     Dosage: 10MG , UNK
     Route: 065

REACTIONS (6)
  - Gait disturbance [Unknown]
  - Impaired work ability [Unknown]
  - Multiple sclerosis [Unknown]
  - Mobility decreased [Unknown]
  - Therapy cessation [Unknown]
  - Dysstasia [Unknown]
